FAERS Safety Report 11930709 (Version 1)
Quarter: 2016Q1

REPORT INFORMATION
  Report Type: Spontaneous
  Country: US (occurrence: US)
  Receive Date: 20160120
  Receipt Date: 20160120
  Transmission Date: 20160526
  Serious: Yes (Hospitalization, Other)
  Sender: FDA-Public Use
  Company Number: US-PFIZER INC-2016024015

PATIENT
  Age: 59 Year
  Sex: Male

DRUGS (7)
  1. TESTOSTERONE CIPIONATE [Suspect]
     Active Substance: TESTOSTERONE
     Indication: FATIGUE
     Dosage: 200 MG, ABOUT EVERY TWO WEEKS
     Dates: start: 20121023
  2. AXIRON [Suspect]
     Active Substance: TESTOSTERONE
     Indication: FATIGUE
     Dosage: UNK
     Dates: start: 201210, end: 201303
  3. TESTOSTERONE CIPIONATE [Suspect]
     Active Substance: TESTOSTERONE
     Indication: HORMONE REPLACEMENT THERAPY
     Dosage: UNK
     Dates: start: 201210, end: 201303
  4. DEPO-TESTOSTERONE [Suspect]
     Active Substance: TESTOSTERONE CYPIONATE
     Indication: HORMONE REPLACEMENT THERAPY
     Dosage: UNK
     Dates: start: 201210, end: 201303
  5. AXIRON [Suspect]
     Active Substance: TESTOSTERONE
     Indication: HORMONE REPLACEMENT THERAPY
  6. TESTOSTERONE CIPIONATE [Suspect]
     Active Substance: TESTOSTERONE
     Indication: ERECTILE DYSFUNCTION
  7. AXIRON [Suspect]
     Active Substance: TESTOSTERONE
     Indication: ERECTILE DYSFUNCTION
     Dosage: 30 MG, DAILY (ONE PUMP UNDER EACH ARM)
     Dates: start: 20130128

REACTIONS (9)
  - Incontinence [Unknown]
  - Dyspnoea [Unknown]
  - Deep vein thrombosis [Unknown]
  - Palpitations [Unknown]
  - Erectile dysfunction [Unknown]
  - Thrombosis [Unknown]
  - Anxiety [Unknown]
  - Prostate cancer [Unknown]
  - Cardiac failure congestive [Unknown]

NARRATIVE: CASE EVENT DATE: 2012
